FAERS Safety Report 6996552-8 (Version None)
Quarter: 2010Q3

REPORT INFORMATION
  Report Type: 
  Country: None (occurrence: None)
  Receive Date: 20100918
  Receipt Date: 20090413
  Transmission Date: 20110219
  Serious: No
  Sender: FDA-Public Use
  Company Number: US-WYE-H08949209

PATIENT
  Sex: Female
  Weight: 71.73 kg

DRUGS (2)
  1. PREMPRO [Suspect]
     Indication: HOT FLUSH
     Dosage: 0.625/2.5
     Route: 048
     Dates: start: 20071001
  2. SIMVASTATIN [Concomitant]

REACTIONS (7)
  - ABDOMINAL PAIN UPPER [None]
  - BLOOD CHOLESTEROL INCREASED [None]
  - BLOOD GLUCOSE INCREASED [None]
  - HEADACHE [None]
  - LIPIDS INCREASED [None]
  - VISUAL IMPAIRMENT [None]
  - WEIGHT INCREASED [None]
